FAERS Safety Report 15934892 (Version 1)
Quarter: 2019Q1

REPORT INFORMATION
  Report Type: Spontaneous
  Country: US (occurrence: US)
  Receive Date: 20190207
  Receipt Date: 20190207
  Transmission Date: 20190417
  Serious: No
  Sender: FDA-Public Use
  Company Number: US-JNJFOC-20190122679

PATIENT
  Sex: Female
  Weight: 73.48 kg

DRUGS (2)
  1. TYLENOL EXTRA STRENGTH [Suspect]
     Active Substance: ACETAMINOPHEN
     Indication: FIBROMYALGIA
     Dosage: EVERY 6 TO 8 HOURS DEPENDING ON THE LEVEL OF PAIN
     Route: 048
  2. TYLENOL EXTRA STRENGTH [Suspect]
     Active Substance: ACETAMINOPHEN
     Indication: SPINAL COLUMN STENOSIS
     Dosage: EVERY 6 TO 8 HOURS DEPENDING ON THE LEVEL OF PAIN
     Route: 048

REACTIONS (1)
  - Product use in unapproved indication [Unknown]
